FAERS Safety Report 5825964-0 (Version None)
Quarter: 2008Q3

REPORT INFORMATION
  Report Type: 
  Country: None (occurrence: None)
  Receive Date: 20080723
  Receipt Date: 20080626
  Transmission Date: 20090109
  Serious: Yes (Hospitalization)
  Sender: FDA-Public Use
  Company Number: 88516

PATIENT
  Age: 58 Year
  Sex: 0
  Weight: 96 kg

DRUGS (8)
  1. NAPROXEN [Suspect]
     Indication: GOUT
     Dosage: 500MG/3 / 1 DAYS/ORAL
     Route: 048
     Dates: start: 20070915, end: 20070919
  2. NAPROXEN [Suspect]
     Indication: OSTEOARTHRITIS
     Dosage: 500MG/3 / 1 DAYS/ORAL
     Route: 048
     Dates: start: 20070915, end: 20070919
  3. ASPIRIN [Suspect]
     Indication: MYOCARDIAL ISCHAEMIA
     Dosage: 7MG/U/ORAL
     Route: 048
     Dates: start: 20070821
  4. AMLODIPINE (HYPERTENSION) [Concomitant]
  5. ATORVASTATIN 80MG (HYPERCHOLESTEROLAEMIA) [Concomitant]
  6. BISOPROLOL 10MG (HYPERTENSION) [Concomitant]
  7. LISINOPRIL [Concomitant]
  8. HYDROCHLOROTHIAZIDE 1DF (HYPERTENSION) [Concomitant]

REACTIONS (1)
  - GASTRIC HAEMORRHAGE [None]
